FAERS Safety Report 25486889 (Version 1)
Quarter: 2025Q2

REPORT INFORMATION
  Report Type: Spontaneous
  Country: CL (occurrence: CL)
  Receive Date: 20250627
  Receipt Date: 20250627
  Transmission Date: 20250716
  Serious: Yes (Hospitalization, Other)
  Sender: AMGEN
  Company Number: CL-AMGEN-CHLSP2025121768

PATIENT

DRUGS (2)
  1. ADALIMUMAB [Suspect]
     Active Substance: ADALIMUMAB
     Indication: Product used for unknown indication
     Route: 065
  2. ETANERCEPT [Suspect]
     Active Substance: ETANERCEPT
     Indication: Product used for unknown indication
     Route: 065

REACTIONS (24)
  - Enterococcal infection [Unknown]
  - Clostridium difficile infection [Unknown]
  - Gastroenteritis norovirus [Unknown]
  - Gastroenteritis rotavirus [Unknown]
  - Respiratory syncytial virus infection [Unknown]
  - Gastroenteritis Escherichia coli [Unknown]
  - Mycoplasma infection [Unknown]
  - Escherichia infection [Unknown]
  - Klebsiella infection [Unknown]
  - Gastroenteritis adenovirus [Unknown]
  - Tuberculosis [Unknown]
  - Bacterial infection [Unknown]
  - Influenza [Unknown]
  - Systemic infection [Unknown]
  - Metapneumovirus infection [Unknown]
  - Osteomyelitis [Unknown]
  - Lower respiratory tract infection [Unknown]
  - Hepatitis B reactivation [Unknown]
  - Gastrointestinal infection [Unknown]
  - Upper respiratory tract infection [Unknown]
  - Genitourinary tract infection [Unknown]
  - Staphylococcal infection [Unknown]
  - Skin infection [Unknown]
  - Varicella [Unknown]
